FAERS Safety Report 16566853 (Version 1)
Quarter: 2019Q3

REPORT INFORMATION
  Report Type: Report from Study
  Country: US (occurrence: US)
  Receive Date: 20190712
  Receipt Date: 20190712
  Transmission Date: 20191004
  Serious: Yes (Hospitalization)
  Sender: FDA-Public Use
  Company Number: US-ROCHE-2247456

PATIENT
  Age: 56 Year
  Sex: Male
  Weight: 102.15 kg

DRUGS (4)
  1. IBUPROFEN. [Concomitant]
     Active Substance: IBUPROFEN
     Route: 065
  2. LEFLUNOMIDE. [Concomitant]
     Active Substance: LEFLUNOMIDE
  3. OCREVUS [Suspect]
     Active Substance: OCRELIZUMAB
     Indication: PRIMARY PROGRESSIVE MULTIPLE SCLEROSIS
     Dosage: ONGOING; YES?2ND DOSE JAN/2018?3RD DOSE JUN/2018
     Route: 065
     Dates: start: 201801
  4. NORCO [Concomitant]
     Active Substance: ACETAMINOPHEN\HYDROCODONE BITARTRATE
     Indication: PAIN
     Route: 065

REACTIONS (8)
  - Abdominal discomfort [Unknown]
  - Muscular weakness [Not Recovered/Not Resolved]
  - Kidney infection [Unknown]
  - Malaise [Unknown]
  - Sinusitis [Not Recovered/Not Resolved]
  - Drug ineffective [Unknown]
  - Urine abnormality [Unknown]
  - Urinary sediment present [Unknown]

NARRATIVE: CASE EVENT DATE: 201805
